FAERS Safety Report 23576169 (Version 3)
Quarter: 2024Q2

REPORT INFORMATION
  Report Type: Report from Study
  Country: US (occurrence: US)
  Receive Date: 20240228
  Receipt Date: 20240430
  Transmission Date: 20240715
  Serious: No
  Sender: FDA-Public Use
  Company Number: US-BRISTOL-MYERS SQUIBB COMPANY-2024-031618

PATIENT
  Age: 67 Year
  Sex: Female
  Weight: 126.64 kg

DRUGS (1)
  1. REVLIMID [Suspect]
     Active Substance: LENALIDOMIDE
     Indication: Plasma cell myeloma
     Dosage: FREQUENCY: 14
     Route: 048

REACTIONS (7)
  - Product distribution issue [Unknown]
  - Therapy interrupted [Unknown]
  - Off label use [Unknown]
  - Blood calcium decreased [Unknown]
  - Myalgia [Unknown]
  - Immune system disorder [Unknown]
  - Asthenia [Unknown]
